FAERS Safety Report 14963723 (Version 1)
Quarter: 2018Q2

REPORT INFORMATION
  Report Type: Spontaneous
  Country: US (occurrence: US)
  Receive Date: 20180601
  Receipt Date: 20180601
  Transmission Date: 20180711
  Serious: Yes (Other)
  Sender: FDA-Public Use
  Company Number: US-PFIZER INC-2018217321

PATIENT
  Age: 55 Year
  Sex: Male

DRUGS (1)
  1. METHOTREXATE SODIUM. [Suspect]
     Active Substance: METHOTREXATE SODIUM
     Indication: RHEUMATOID ARTHRITIS
     Dosage: UNK

REACTIONS (7)
  - Musculoskeletal pain [Recovering/Resolving]
  - Drug effect incomplete [Unknown]
  - Tympanic membrane perforation [Unknown]
  - Hypoaesthesia [Unknown]
  - Joint swelling [Recovering/Resolving]
  - Eye infection [Unknown]
  - Pain [Recovering/Resolving]
